FAERS Safety Report 17841901 (Version 2)
Quarter: 2020Q3

REPORT INFORMATION
  Report Type: Spontaneous
  Country: US (occurrence: US)
  Receive Date: 20200529
  Receipt Date: 20200807
  Transmission Date: 20201103
  Serious: Yes (Other)
  Sender: FDA-Public Use
  Company Number: US-NOVOPROD-730386

PATIENT
  Age: 67 Year
  Sex: Female

DRUGS (1)
  1. NOVOLOG [Suspect]
     Active Substance: INSULIN ASPART
     Indication: TYPE 2 DIABETES MELLITUS
     Dosage: 10?16 UNITS, 22 AT LUNCH, 34?36 DINNER
     Route: 058
     Dates: start: 2017

REACTIONS (5)
  - Condition aggravated [Recovered/Resolved]
  - Arthritis [Recovered/Resolved]
  - Thyroid mass [Not Recovered/Not Resolved]
  - Ligament disorder [Not Recovered/Not Resolved]
  - Bone disorder [Not Recovered/Not Resolved]

NARRATIVE: CASE EVENT DATE: 2017
